FAERS Safety Report 6624340-0 (Version None)
Quarter: 2010Q1

REPORT INFORMATION
  Report Type: 
  Country: None (occurrence: None)
  Receive Date: 20100310
  Receipt Date: 20091013
  Transmission Date: 20100710
  Serious: No
  Sender: FDA-Public Use
  Company Number: US-BIOGENIDEC-2009BI032902

PATIENT
  Age: 61 Year
  Sex: Female

DRUGS (4)
  1. AVONEX [Suspect]
     Indication: MULTIPLE SCLEROSIS
     Route: 030
     Dates: start: 20090313
  2. AVONEX [Suspect]
     Route: 030
     Dates: start: 20010101
  3. AVONEX [Suspect]
     Route: 030
     Dates: end: 20050101
  4. DILAUDID [Concomitant]
     Indication: INTERVERTEBRAL DISC DEGENERATION
     Route: 048

REACTIONS (2)
  - BURNING SENSATION [None]
  - MUSCLE SPASTICITY [None]
